FAERS Safety Report 9575058 (Version 1)
Quarter: 2013Q4

REPORT INFORMATION
  Report Type: Spontaneous
  Country: US (occurrence: US)
  Receive Date: 20131001
  Receipt Date: 20131001
  Transmission Date: 20140711
  Serious: Yes (Hospitalization)
  Sender: FDA-Public Use
  Company Number: US-BAXTER-2012BAX025390

PATIENT
  Age: 58 Year
  Sex: Male

DRUGS (14)
  1. DIANEAL LOW CALCIUM [Suspect]
     Indication: PERITONEAL DIALYSIS
     Dosage: 8L
     Route: 033
  2. LISINOPRIL [Concomitant]
     Indication: HYPERTENSION
  3. HYDROXYZINE [Concomitant]
     Indication: PRODUCT USED FOR UNKNOWN INDICATION
  4. FINASTERIDE [Concomitant]
     Indication: PRODUCT USED FOR UNKNOWN INDICATION
  5. FENOFIBRATE [Concomitant]
     Indication: PRODUCT USED FOR UNKNOWN INDICATION
  6. NIFEDIPINE XL [Concomitant]
     Indication: HYPERTENSION
  7. HYDROCODONE [Concomitant]
     Indication: PAIN
  8. SOMA [Concomitant]
     Indication: PRODUCT USED FOR UNKNOWN INDICATION
  9. HUMALOG [Concomitant]
     Indication: DIABETES MELLITUS
  10. HUMALOG [Concomitant]
  11. HUMALOG [Concomitant]
  12. TORSEMIDE [Concomitant]
     Indication: PRODUCT USED FOR UNKNOWN INDICATION
  13. CALCITROL [Concomitant]
     Indication: PRODUCT USED FOR UNKNOWN INDICATION
  14. LEVEMIR [Concomitant]
     Indication: DIABETES MELLITUS

REACTIONS (1)
  - Peritonitis bacterial [Recovered/Resolved]
